FAERS Safety Report 8938380 (Version 3)
Quarter: 2013Q1

REPORT INFORMATION
  Report Type: Spontaneous
  Country: US (occurrence: US)
  Receive Date: 20121203
  Receipt Date: 20130219
  Transmission Date: 20140127
  Serious: Yes (Other)
  Sender: FDA-Public Use
  Company Number: PHEH2012US023458

PATIENT
  Age: 73 Year
  Sex: Female
  Weight: 68.93 kg

DRUGS (2)
  1. RECLAST [Suspect]
     Indication: OSTEOPOROSIS
     Dosage: UNK
     Route: 042
     Dates: start: 201106
  2. RECLAST [Suspect]
     Dosage: UNK
     Route: 042
     Dates: start: 201208

REACTIONS (3)
  - Foot fracture [Unknown]
  - Pain in extremity [Unknown]
  - Drug ineffective [Unknown]
